FAERS Safety Report 10174152 (Version 2)
Quarter: 2014Q3

REPORT INFORMATION
  Report Type: Spontaneous
  Country: US (occurrence: US)
  Receive Date: 20140515
  Receipt Date: 20140903
  Transmission Date: 20150326
  Serious: No
  Sender: FDA-Public Use
  Company Number: US-GILEAD-2014-0102342

PATIENT
  Age: 66 Year
  Sex: Female

DRUGS (4)
  1. LETAIRIS [Suspect]
     Active Substance: AMBRISENTAN
     Indication: PULMONARY HYPERTENSION
     Dosage: 10 MG, QD
     Route: 065
     Dates: start: 201308
  2. RIOCIGUAT [Concomitant]
     Active Substance: RIOCIGUAT
  3. LETAIRIS [Suspect]
     Active Substance: AMBRISENTAN
     Indication: CARDIAC FAILURE
  4. TYVASO [Concomitant]
     Active Substance: TREPROSTINIL

REACTIONS (4)
  - Dyspnoea [Unknown]
  - Swelling [Unknown]
  - Dizziness [Unknown]
  - Tachycardia [Unknown]
